FAERS Safety Report 7157631-8 (Version None)
Quarter: 2010Q4

REPORT INFORMATION
  Report Type: 
  Country: None (occurrence: None)
  Receive Date: 20101214
  Receipt Date: 20100308
  Transmission Date: 20110411
  Serious: No
  Sender: FDA-Public Use
  Company Number: US-ASTRAZENECA-2010SE09933

PATIENT
  Age: 65 Year
  Sex: Female
  Weight: 57.2 kg

DRUGS (3)
  1. CRESTOR [Suspect]
     Indication: BLOOD CHOLESTEROL INCREASED
     Route: 048
     Dates: start: 20050101
  2. PROZAC [Concomitant]
  3. NADOLOL [Concomitant]

REACTIONS (2)
  - ABDOMINAL DISCOMFORT [None]
  - COELIAC DISEASE [None]
